FAERS Safety Report 18260874 (Version 5)
Quarter: 2020Q4

REPORT INFORMATION
  Report Type: Report from Study
  Country: US (occurrence: US)
  Receive Date: 20200914
  Receipt Date: 20201028
  Transmission Date: 20210113
  Serious: Yes (Hospitalization)
  Sender: FDA-Public Use
  Company Number: US-BEIGENE-BGN-2020-001681

PATIENT

DRUGS (4)
  1. VALACYCLOVIR MYLAN [Concomitant]
     Indication: PROPHYLAXIS
     Dosage: 500 MILLIGRAM, Q12H
     Route: 048
     Dates: start: 20170822
  2. ZANUBRUTINIB [Suspect]
     Active Substance: ZANUBRUTINIB
     Indication: CHRONIC LYMPHOCYTIC LEUKAEMIA
     Dosage: 160 MILLIGRAM, BID
     Route: 048
     Dates: start: 20200609, end: 20200902
  3. LEVOTHYROXINE. [Concomitant]
     Active Substance: LEVOTHYROXINE
     Indication: HYPOTHYROIDISM
     Dosage: 50 MICROGRAM, QD
     Route: 048
     Dates: start: 20160829
  4. GABAPENTIN. [Concomitant]
     Active Substance: GABAPENTIN
     Indication: PAIN PROPHYLAXIS
     Dosage: 300 MILLIGRAM, PRN
     Route: 048
     Dates: start: 20171115

REACTIONS (2)
  - Febrile neutropenia [Recovered/Resolved]
  - Salmonellosis [Recovering/Resolving]

NARRATIVE: CASE EVENT DATE: 20200905
